FAERS Safety Report 6873490-2 (Version None)
Quarter: 2010Q3

REPORT INFORMATION
  Report Type: 
  Country: None (occurrence: None)
  Receive Date: 20100723
  Receipt Date: 20090120
  Transmission Date: 20110219
  Serious: Yes (Other)
  Sender: FDA-Public Use
  Company Number: US-PFIZER INC-2009158026

PATIENT
  Sex: Female
  Weight: 50 kg

DRUGS (5)
  1. CHANTIX [Suspect]
     Dates: start: 20080630, end: 20080721
  2. PREVACID [Concomitant]
     Dosage: 30 MG, 1X/DAY
  3. BENZONATATE [Concomitant]
     Dosage: 200 MG, 1X/DAY
  4. ALBUTEROL [Concomitant]
     Dosage: UNK
  5. HYDROCODONE BITARTRATE [Concomitant]
     Dosage: 500 MG

REACTIONS (12)
  - ABNORMAL DREAMS [None]
  - ANXIETY [None]
  - CHEST DISCOMFORT [None]
  - CRYING [None]
  - DEPRESSION [None]
  - DIARRHOEA [None]
  - DYSPNOEA [None]
  - HEADACHE [None]
  - HEART RATE INCREASED [None]
  - INSOMNIA [None]
  - NERVOUSNESS [None]
  - SUICIDAL IDEATION [None]
